FAERS Safety Report 10564058 (Version 3)
Quarter: 2017Q4

REPORT INFORMATION
  Report Type: Spontaneous
  Country: US (occurrence: US)
  Receive Date: 20141104
  Receipt Date: 20171228
  Transmission Date: 20180320
  Serious: Yes (Hospitalization, Other)
  Sender: FDA-Public Use
  Company Number: US-BAYER-2014-162494

PATIENT
  Age: 32 Year
  Sex: Female
  Weight: 58.96 kg

DRUGS (2)
  1. MIRENA [Suspect]
     Active Substance: LEVONORGESTREL
  2. MIRENA [Suspect]
     Active Substance: LEVONORGESTREL
     Indication: CONTRACEPTION
     Dosage: 20 MCG/24HR, CONT
     Route: 015
     Dates: start: 20071019, end: 20130118

REACTIONS (6)
  - Injury [None]
  - Device use error [None]
  - Procedural pain [Not Recovered/Not Resolved]
  - Pain [None]
  - Uterine perforation [None]
  - Pelvic inflammatory disease [None]

NARRATIVE: CASE EVENT DATE: 201212
